FAERS Safety Report 20124141 (Version 1)
Quarter: 2021Q4

REPORT INFORMATION
  Report Type: Other
  Country: US (occurrence: US)
  Receive Date: 20211129
  Receipt Date: 20211129
  Transmission Date: 20220303
  Serious: No
  Sender: FDA-Public Use
  Company Number: US-UROVANT SCIENCES GMBH-202108-URV-000424

PATIENT
  Sex: Female

DRUGS (1)
  1. GEMTESA [Suspect]
     Active Substance: VIBEGRON
     Indication: Polyuria
     Dosage: UNKNOWN
     Route: 065

REACTIONS (2)
  - Drug ineffective [Unknown]
  - Pollakiuria [Unknown]
